FAERS Safety Report 9084519 (Version 1)
Quarter: 2013Q1

REPORT INFORMATION
  Report Type: Report from Study
  Country: US (occurrence: US)
  Receive Date: 20130131
  Receipt Date: 20130131
  Transmission Date: 20140127
  Serious: No
  Sender: FDA-Public Use
  Company Number: US-ABBOTT-12P-163-0993952-00

PATIENT
  Age: 50 Year
  Sex: Female

DRUGS (19)
  1. HUMIRA [Suspect]
     Indication: RHEUMATOID ARTHRITIS
     Dates: start: 200003
  2. PREDNISONE [Concomitant]
     Indication: RHEUMATOID ARTHRITIS
  3. PLAQUENIL [Concomitant]
     Indication: RHEUMATOID ARTHRITIS
  4. NEXIUM [Concomitant]
     Indication: GASTROOESOPHAGEAL REFLUX DISEASE
  5. METFORMIN [Concomitant]
     Indication: DIABETES MELLITUS
  6. LORCET 10/650 [Concomitant]
     Indication: PAIN
     Dosage: 10/650 MG
  7. FOLIC ACID [Concomitant]
     Indication: PRODUCT USED FOR UNKNOWN INDICATION
  8. DURAGESIC MAT [Concomitant]
     Indication: PAIN
  9. DIOVAN [Concomitant]
     Indication: BLOOD PRESSURE
  10. CYMBALTA [Concomitant]
     Indication: DEPRESSION
  11. ATENOLOL [Concomitant]
     Indication: BLOOD PRESSURE
  12. ALLEGRA [Concomitant]
     Indication: ASTHMA
  13. CALCIUM [Concomitant]
     Indication: PRODUCT USED FOR UNKNOWN INDICATION
  14. ROPINIROLE [Concomitant]
     Indication: RESTLESS LEGS SYNDROME
  15. VERAPAMIL [Concomitant]
     Indication: BLOOD PRESSURE
  16. PRAVASTATIN [Concomitant]
     Indication: BLOOD CHOLESTEROL
     Dosage: 1 AT HOUR OF SLEEP
  17. VITAMIN D NOS [Concomitant]
     Indication: PRODUCT USED FOR UNKNOWN INDICATION
  18. AMITRIPTYLINE [Concomitant]
     Indication: DEPRESSION
     Dosage: 1 AT HOUR OF SLEEP
  19. POTASSIUM CHLORIDE [Concomitant]
     Indication: PRODUCT USED FOR UNKNOWN INDICATION

REACTIONS (6)
  - Poor quality drug administered [Unknown]
  - Injection site pain [Recovered/Resolved]
  - Dyspepsia [Unknown]
  - Feeling of body temperature change [Unknown]
  - Nausea [Unknown]
  - Asthenia [Unknown]
